FAERS Safety Report 8887299 (Version 3)
Quarter: 2013Q1

REPORT INFORMATION
  Report Type: Report from Study
  Country: NO (occurrence: NO)
  Receive Date: 20121101
  Receipt Date: 20130205
  Transmission Date: 20140127
  Serious: Yes (Hospitalization)
  Sender: FDA-Public Use
  Company Number: NO-CELGENEUS-122-21880-12100489

PATIENT
  Age: 71 Year
  Sex: Female
  Weight: 52 kg

DRUGS (11)
  1. REVLIMID [Suspect]
     Indication: PLASMA CELL MYELOMA
     Route: 048
     Dates: start: 20120713, end: 20120716
  2. ALKERAN [Suspect]
     Indication: PLASMA CELL MYELOMA
     Route: 048
     Dates: start: 20120713, end: 20120716
  3. PREDNISONE [Suspect]
     Indication: PLASMA CELL MYELOMA
     Route: 048
     Dates: start: 20120713, end: 20120802
  4. CETIRIZINE [Concomitant]
     Indication: HYPERSENSITIVITY
     Dosage: 10 MILLIGRAM
     Route: 048
     Dates: start: 200201
  5. TRISEKVENS [Concomitant]
     Indication: POSTMENOPAUSE
     Route: 048
     Dates: start: 200201
  6. PNIANT [Concomitant]
     Indication: PAIN
     Dosage: 16 GRAM
     Route: 048
     Dates: start: 201203
  7. CALCIUM FORTE [Concomitant]
     Indication: OSTEOPOROSIS
     Route: 048
     Dates: start: 201203
  8. TAUGIN G [Concomitant]
     Indication: PAIN
     Dosage: 20MG/10MG
     Route: 048
     Dates: start: 201204
  9. ALBYL [Concomitant]
     Indication: PROPHYLAXIS
     Route: 048
     Dates: start: 201204
  10. LACTULOSE [Concomitant]
     Indication: CONSTIPATION
     Route: 048
     Dates: start: 201203
  11. PAMIDRONATE [Concomitant]
     Indication: OSTEOPOROSIS
     Route: 041
     Dates: start: 201204

REACTIONS (3)
  - Diverticular fistula [Recovered/Resolved]
  - Diverticulitis [Recovered/Resolved]
  - Urinary tract infection [Recovered/Resolved]
